FAERS Safety Report 23421280 (Version 1)
Quarter: 2024Q1

REPORT INFORMATION
  Report Type: Spontaneous
  Country: US (occurrence: US)
  Receive Date: 20240119
  Receipt Date: 20240119
  Transmission Date: 20240409
  Serious: No
  Sender: FDA-Public Use
  Company Number: US-ELI_LILLY_AND_COMPANY-US202401009935

PATIENT
  Age: 59 Year
  Sex: Female

DRUGS (2)
  1. TALTZ [Suspect]
     Active Substance: IXEKIZUMAB
     Indication: Product used for unknown indication
     Dosage: UNK UNK, UNKNOWN
     Route: 065
  2. HUMIRA [Suspect]
     Active Substance: ADALIMUMAB
     Indication: Ankylosing spondylitis
     Dosage: UNK UNK, UNKNOWN
     Route: 058

REACTIONS (6)
  - Malaise [Unknown]
  - Irritable bowel syndrome [Unknown]
  - HLA-B*27 positive [Unknown]
  - Red blood cell sedimentation rate increased [Unknown]
  - Osteoporosis [Unknown]
  - Fibromyalgia [Unknown]
